FAERS Safety Report 10215856 (Version 3)
Quarter: 2016Q1

REPORT INFORMATION
  Report Type: Report from Study
  Country: US (occurrence: US)
  Receive Date: 20140604
  Receipt Date: 20160307
  Transmission Date: 20160525
  Serious: Yes (Hospitalization, Other)
  Sender: FDA-Public Use
  Company Number: US-ROCHE-1379388

PATIENT
  Age: 55 Year
  Sex: Female

DRUGS (10)
  1. XOLAIR [Suspect]
     Active Substance: OMALIZUMAB
     Route: 065
  2. KETOTIFEN [Concomitant]
     Active Substance: KETOTIFEN
  3. CELLCEPT [Suspect]
     Active Substance: MYCOPHENOLATE MOFETIL\MYCOPHENOLATE MOFETIL HYDROCHLORIDE
     Indication: URTICARIA
     Route: 048
     Dates: start: 200901, end: 20090203
  4. XOLAIR [Suspect]
     Active Substance: OMALIZUMAB
     Indication: URTICARIA
     Route: 065
     Dates: start: 20101119
  5. ALLEGRA [Concomitant]
     Active Substance: FEXOFENADINE HYDROCHLORIDE
     Route: 048
  6. ACTONEL [Concomitant]
     Active Substance: RISEDRONATE SODIUM
     Route: 065
  7. DOXEPIN [Concomitant]
     Active Substance: DOXEPIN
     Route: 048
  8. COLCHICINE. [Concomitant]
     Active Substance: COLCHICINE
  9. PREDNISONE. [Concomitant]
     Active Substance: PREDNISONE
  10. XYZAL [Concomitant]
     Active Substance: LEVOCETIRIZINE DIHYDROCHLORIDE
     Route: 048

REACTIONS (3)
  - Intestinal dilatation [Unknown]
  - Clostridium difficile infection [Recovered/Resolved]
  - Osteonecrosis [Unknown]

NARRATIVE: CASE EVENT DATE: 200902
